FAERS Safety Report 6423812-1 (Version None)
Quarter: 2009Q4

REPORT INFORMATION
  Report Type: 
  Country: None (occurrence: None)
  Receive Date: 20091030
  Receipt Date: 20091030
  Transmission Date: 20100525
  Serious: Yes (Hospitalization)
  Sender: FDA-Public Use
  Company Number: None

PATIENT
  Age: 37 Year
  Sex: Male

DRUGS (1)
  1. CLONAZEPAM [Suspect]
     Indication: BIPOLAR I DISORDER
     Dosage: 2-5 MG ONCE PO
     Route: 048

REACTIONS (3)
  - ALCOHOL USE [None]
  - DEPRESSION [None]
  - OVERDOSE [None]
